FAERS Safety Report 6769474-5 (Version None)
Quarter: 2010Q2

REPORT INFORMATION
  Report Type: 
  Country: None (occurrence: None)
  Receive Date: 20100608
  Receipt Date: 20100531
  Transmission Date: 20101027
  Serious: Yes (Other)
  Sender: FDA-Public Use
  Company Number: 2010SP010224

PATIENT
  Age: 29 Year
  Sex: Female
  Weight: 78 kg

DRUGS (2)
  1. NUVARING [Suspect]
     Indication: CONTRACEPTION
     Dosage: ;QM; VAG
     Route: 067
     Dates: start: 20091015
  2. NEURACTIN [Concomitant]

REACTIONS (2)
  - DISEASE RECURRENCE [None]
  - GRAND MAL CONVULSION [None]
